FAERS Safety Report 12501176 (Version 1)
Quarter: 2016Q2

REPORT INFORMATION
  Report Type: Spontaneous
  Country: HU (occurrence: HU)
  Receive Date: 20160627
  Receipt Date: 20160627
  Transmission Date: 20160815
  Serious: Yes (Other)
  Sender: FDA-Public Use
  Company Number: HU-PURDUE PHARMA-GBR-2016-0036936

PATIENT
  Age: 95 Year
  Sex: Male

DRUGS (9)
  1. FURON                              /00032601/ [Concomitant]
     Active Substance: FUROSEMIDE
  2. VEROSPIRON [Concomitant]
     Active Substance: SPIRONOLACTONE
  3. OXYCONTIN [Suspect]
     Active Substance: OXYCODONE HYDROCHLORIDE
     Indication: PAIN
     Dosage: 10 MG, BID
     Route: 048
     Dates: start: 20160422, end: 20160423
  4. MILURIT [Concomitant]
     Active Substance: ALLOPURINOL
  5. KALIUM                             /00031401/ [Concomitant]
  6. TALLITON [Concomitant]
  7. ADEXOR [Concomitant]
  8. ATORIS [Concomitant]
     Active Substance: ATORVASTATIN CALCIUM
  9. MARFARIN [Concomitant]
     Active Substance: WARFARIN

REACTIONS (2)
  - Renal failure [Recovered/Resolved]
  - Hallucination [Recovered/Resolved]

NARRATIVE: CASE EVENT DATE: 20160422
